FAERS Safety Report 23187546 (Version 2)
Quarter: 2023Q4

REPORT INFORMATION
  Report Type: Spontaneous
  Country: US (occurrence: US)
  Receive Date: 20231115
  Receipt Date: 20231212
  Transmission Date: 20240110
  Serious: No
  Sender: FDA-Public Use
  Company Number: US-BAYER-2023A157263

PATIENT
  Age: 54 Year
  Sex: Female

DRUGS (2)
  1. BETASERON [Suspect]
     Active Substance: INTERFERON BETA-1B
     Indication: Multiple sclerosis
  2. DEVICE [Suspect]
     Active Substance: DEVICE
     Dosage: UNK
     Dates: start: 20230719, end: 20230721

REACTIONS (2)
  - Product dose omission issue [None]
  - Device dispensing error [None]

NARRATIVE: CASE EVENT DATE: 20231101
